FAERS Safety Report 8847292 (Version 1)
Quarter: 2012Q4

REPORT INFORMATION
  Report Type: 
  Country: FR (occurrence: FR)
  Receive Date: 20121018
  Receipt Date: 20121018
  Transmission Date: 20130627
  Serious: Yes (Other)
  Sender: FDA-Public Use
  Company Number: FR-ROCHE-1145856

PATIENT
  Age: 83 Year
  Sex: Male

DRUGS (2)
  1. LUCENTIS [Suspect]
     Indication: AGE-RELATED MACULAR DEGENERATION
     Route: 050
     Dates: start: 201101
  2. LUCENTIS [Suspect]
     Route: 050
     Dates: start: 201209

REACTIONS (3)
  - Eye haemorrhage [Unknown]
  - Visual acuity reduced [Unknown]
  - Inappropriate schedule of drug administration [Unknown]
